FAERS Safety Report 6095094-4 (Version None)
Quarter: 2009Q1

REPORT INFORMATION
  Report Type: 
  Country: None (occurrence: None)
  Receive Date: 20090227
  Receipt Date: 20080208
  Transmission Date: 20090719
  Serious: No
  Sender: FDA-Public Use
  Company Number: A0703874A

PATIENT
  Age: 28 Year
  Sex: Male

DRUGS (2)
  1. LAMICTAL [Suspect]
     Indication: DRUG USE FOR UNKNOWN INDICATION
     Dosage: 100MG AT NIGHT
     Route: 048
     Dates: start: 20070717
  2. PAXIL [Concomitant]

REACTIONS (1)
  - RASH [None]
